FAERS Safety Report 6401582-0 (Version None)
Quarter: 2009Q4

REPORT INFORMATION
  Report Type: 
  Country: None (occurrence: None)
  Receive Date: 20091015
  Receipt Date: 20091008
  Transmission Date: 20100525
  Serious: Yes (Other)
  Sender: FDA-Public Use
  Company Number: DE-AVENTIS-200921425GDDC

PATIENT
  Age: 33 Year
  Sex: Male

DRUGS (5)
  1. INSUMAN RAPID [Suspect]
     Indication: TYPE 1 DIABETES MELLITUS
     Route: 058
     Dates: start: 19840101
  2. INSUMAN BASAL                      /01428201/ [Suspect]
     Indication: TYPE 1 DIABETES MELLITUS
     Dates: start: 19880101, end: 20000101
  3. LANTUS [Suspect]
     Indication: TYPE 1 DIABETES MELLITUS
     Route: 058
     Dates: start: 20000101, end: 20060101
  4. NOVORAPID [Suspect]
     Indication: TYPE 1 DIABETES MELLITUS
     Dates: start: 20040101, end: 20070101
  5. LEVEMIR [Suspect]
     Indication: TYPE 1 DIABETES MELLITUS
     Route: 058
     Dates: start: 20060101

REACTIONS (1)
  - AMYLOIDOSIS [None]
